FAERS Safety Report 10559380 (Version 1)
Quarter: 2014Q3

REPORT INFORMATION
  Report Type: Spontaneous
  Country: US (occurrence: None)
  Receive Date: 20140801
  Receipt Date: 20140801
  Transmission Date: 20150326
  Serious: No
  Sender: FDA-Public Use
  Company Number: US-BIOTEST-T 262/14

PATIENT
  Age: 15 Year
  Sex: Male

DRUGS (1)
  1. BIVIGAM [Suspect]
     Active Substance: HUMAN IMMUNOGLOBULIN G
     Indication: HYPOGAMMAGLOBULINAEMIA
     Route: 041
     Dates: start: 20131001, end: 20131001

REACTIONS (7)
  - Depression [None]
  - Diarrhoea [None]
  - Headache [None]
  - Arthralgia [None]
  - Bone pain [None]
  - Abdominal pain upper [None]
  - Feeling abnormal [None]

NARRATIVE: CASE EVENT DATE: 20131001
